FAERS Safety Report 5363473-6 (Version None)
Quarter: 2007Q2

REPORT INFORMATION
  Report Type: 
  Country: None (occurrence: None)
  Receive Date: 20070620
  Receipt Date: 20070611
  Transmission Date: 20071010
  Serious: Yes (Other)
  Sender: FDA-Public Use
  Company Number: FR-ROCHE-502260

PATIENT
  Sex: Male

DRUGS (3)
  1. FUZEON [Suspect]
     Dosage: SUSPECTED BATCH.
     Route: 065
     Dates: start: 20070326, end: 20070526
  2. FUZEON [Suspect]
     Route: 065
     Dates: start: 20070527
  3. ANTIRETROVIRAL [Concomitant]

REACTIONS (3)
  - EOSINOPHILIA [None]
  - EYE INFECTION TOXOPLASMAL [None]
  - PRURITUS GENERALISED [None]
